APPROVED DRUG PRODUCT: PHENYTOIN
Active Ingredient: PHENYTOIN
Strength: 125MG/5ML
Dosage Form/Route: SUSPENSION;ORAL
Application: A089892 | Product #001
Applicant: ACTAVIS MID ATLANTIC LLC
Approved: Sep 25, 1992 | RLD: No | RS: No | Type: DISCN